FAERS Safety Report 15194729 (Version 1)
Quarter: 2018Q3

REPORT INFORMATION
  Report Type: Spontaneous
  Country: US (occurrence: US)
  Receive Date: 20180626
  Receipt Date: 20180626
  Transmission Date: 20181010
  Serious: Yes (Hospitalization)
  Sender: FDA-Public Use
  Company Number: None

PATIENT
  Age: 57 Year
  Sex: Male
  Weight: 71.21 kg

DRUGS (2)
  1. HALOPERIDOL ( HALDOL DECANOATE) [Concomitant]
  2. LISINOPRIL 5MG TABS [Suspect]
     Active Substance: LISINOPRIL
     Indication: HYPERTENSION
     Route: 048
     Dates: start: 20170919, end: 20180528

REACTIONS (1)
  - Angioedema [None]

NARRATIVE: CASE EVENT DATE: 20180528
